FAERS Safety Report 25736562 (Version 1)
Quarter: 2025Q3

REPORT INFORMATION
  Report Type: Spontaneous
  Country: EU (occurrence: EU)
  Receive Date: 20250828
  Receipt Date: 20250828
  Transmission Date: 20251020
  Serious: Yes (Other)
  Sender: BRISTOL-MYERS SQUIBB COMPANY
  Company Number: None

PATIENT
  Age: 74 Year
  Sex: Male
  Weight: 105 kg

DRUGS (1)
  1. ELIQUIS [Suspect]
     Active Substance: APIXABAN
     Indication: Factor V Leiden mutation
     Route: 048
     Dates: start: 20241223, end: 20250728

REACTIONS (1)
  - Amaurosis fugax [Recovered/Resolved]
